FAERS Safety Report 5224871-4 (Version None)
Quarter: 2007Q1

REPORT INFORMATION
  Report Type: 
  Country: None (occurrence: None)
  Receive Date: 20070126
  Receipt Date: 20070116
  Transmission Date: 20070707
  Serious: Yes (Life-Threatening, Hospitalization)
  Sender: FDA-Public Use
  Company Number: GXKR2007DEC00815

PATIENT
  Age: 31 Year
  Sex: Male

DRUGS (4)
  1. MINOCYCLINE HCL [Suspect]
     Indication: ACNE
  2. AMPICILLIN+SULBACTAM (NGX) (AMPICLLIN, SULBACTAM) [Suspect]
     Indication: ACNE
  3. GENTAMICIN [Suspect]
     Indication: ACNE
  4. FLOXACILLIN SODIUM [Suspect]
     Indication: ACNE

REACTIONS (9)
  - ACNE PUSTULAR [None]
  - AGRANULOCYTOSIS [None]
  - BLOOD FIBRINOGEN INCREASED [None]
  - C-REACTIVE PROTEIN INCREASED [None]
  - DRUG INEFFECTIVE [None]
  - NECROSIS [None]
  - SERRATIA INFECTION [None]
  - SWELLING FACE [None]
  - TORSADE DE POINTES [None]
